FAERS Safety Report 12613732 (Version 1)
Quarter: 2016Q3

REPORT INFORMATION
  Report Type: Spontaneous
  Country: US (occurrence: None)
  Receive Date: 20160801
  Receipt Date: 20160801
  Transmission Date: 20161109
  Serious: Yes (Disabling)
  Sender: FDA-Public Use
  Company Number: None

PATIENT
  Age: 40 Year
  Sex: Female
  Weight: 102.97 kg

DRUGS (7)
  1. SYNTHROID [Concomitant]
     Active Substance: LEVOTHYROXINE SODIUM
  2. FISH OIL [Concomitant]
     Active Substance: FISH OIL
  3. LEVAQUIN [Suspect]
     Active Substance: LEVOFLOXACIN
  4. CIPRO [Suspect]
     Active Substance: CIPROFLOXACIN HYDROCHLORIDE
     Indication: URINARY TRACT INFECTION
     Route: 048
     Dates: start: 20160726, end: 20160729
  5. EFFEXOR XR EXTENDED-RELEASE [Concomitant]
     Active Substance: VENLAFAXINE HYDROCHLORIDE
  6. VITAMIN B12 [Concomitant]
     Active Substance: CYANOCOBALAMIN
  7. ATIVAN [Concomitant]
     Active Substance: LORAZEPAM

REACTIONS (9)
  - Malaise [None]
  - Pyrexia [None]
  - Asthenia [None]
  - Back pain [None]
  - Flushing [None]
  - Urticaria [None]
  - Headache [None]
  - Feeling hot [None]
  - Eyelid irritation [None]

NARRATIVE: CASE EVENT DATE: 20160729
